FAERS Safety Report 4915277-3 (Version None)
Quarter: 2006Q1

REPORT INFORMATION
  Report Type: 
  Country: None (occurrence: None)
  Receive Date: 20060217
  Receipt Date: 20051101
  Transmission Date: 20060701
  Serious: Yes (Hospitalization)
  Sender: FDA-Public Use
  Company Number: 2005AP05631

PATIENT
  Age: 17897 Day
  Sex: Male
  Weight: 45.8 kg

DRUGS (6)
  1. IRESSA [Suspect]
     Indication: NASOPHARYNGEAL CANCER
     Dosage: CYCLE 1
     Route: 048
     Dates: start: 20050824, end: 20050906
  2. IRESSA [Suspect]
     Dosage: CYCLE 1
     Route: 048
     Dates: start: 20050913, end: 20050926
  3. IRESSA [Suspect]
     Dosage: CYCLE 2
     Route: 048
     Dates: start: 20050927, end: 20051025
  4. IRESSA [Suspect]
     Dosage: CYCLE 3 DAY 15
     Route: 048
     Dates: start: 20051026, end: 20051101
  5. NIFEDIPINE [Concomitant]
     Indication: HYPERTENSION
     Route: 048
  6. PIRITON [Concomitant]
     Indication: RHINITIS ALLERGIC
     Route: 048

REACTIONS (7)
  - ABDOMINAL PAIN UPPER [None]
  - BLOOD ALBUMIN DECREASED [None]
  - HAEMATURIA [None]
  - NEPHROLITHIASIS [None]
  - PROTEINURIA [None]
  - RASH [None]
  - WOUND HAEMORRHAGE [None]
